FAERS Safety Report 15559615 (Version 1)
Quarter: 2018Q4

REPORT INFORMATION
  Report Type: Spontaneous
  Country: US (occurrence: US)
  Receive Date: 20181029
  Receipt Date: 20181029
  Transmission Date: 20190205
  Serious: Yes (Death)
  Sender: FDA-Public Use
  Company Number: US-IPSEN BIOPHARMACEUTICALS, INC.-2018-16425

PATIENT
  Age: 52 Year
  Sex: Male

DRUGS (11)
  1. SOMATULINE DEPOT [Suspect]
     Active Substance: LANREOTIDE ACETATE
     Indication: BLADDER CANCER
     Dosage: 0.5 ML PREFILLED SYRINGE
     Route: 058
  2. ONDANSETRON [Concomitant]
     Active Substance: ONDANSETRON
  3. LACTULOSE. [Concomitant]
     Active Substance: LACTULOSE
  4. TAMOXIFEN [Concomitant]
     Active Substance: TAMOXIFEN
  5. NEULASTA [Concomitant]
     Active Substance: PEGFILGRASTIM
  6. AFINITOR [Concomitant]
     Active Substance: EVEROLIMUS
  7. SOMATULINE DEPOT [Suspect]
     Active Substance: LANREOTIDE ACETATE
     Indication: OFF LABEL USE
  8. PHENYTOIN SODIUM EXTEND [Concomitant]
  9. ALPRAZOLAM. [Concomitant]
     Active Substance: ALPRAZOLAM
  10. METOCLOPRAMIDE. [Concomitant]
     Active Substance: METOCLOPRAMIDE
  11. MEGESTROL [Concomitant]
     Active Substance: MEGESTROL

REACTIONS (2)
  - Off label use [Unknown]
  - Death [Fatal]

NARRATIVE: CASE EVENT DATE: 20180916
